FAERS Safety Report 24705253 (Version 1)
Quarter: 2024Q4

REPORT INFORMATION
  Report Type: Spontaneous
  Country: US (occurrence: US)
  Receive Date: 20241206
  Receipt Date: 20241206
  Transmission Date: 20250114
  Serious: No
  Sender: ALVOGEN
  Company Number: US-ALVOGEN-2024093094

PATIENT
  Sex: Male

DRUGS (1)
  1. LEVOTHYROXINE [Suspect]
     Active Substance: LEVOTHYROXINE
     Indication: Hypothyroidism
     Dosage: EXPIRATION: UU-MAR-2025?200 MCG, ONCE A DAY
     Route: 048
     Dates: start: 20231209

REACTIONS (3)
  - Depression [Unknown]
  - Fatigue [Unknown]
  - Drug ineffective [Unknown]
